FAERS Safety Report 20185432 (Version 2)
Quarter: 2022Q3

REPORT INFORMATION
  Report Type: Report from Study
  Country: BR (occurrence: BR)
  Receive Date: 20211215
  Receipt Date: 20220714
  Transmission Date: 20221027
  Serious: Yes (Other)
  Sender: FDA-Public Use
  Company Number: BR-JNJFOC-20211221803

PATIENT
  Age: 7 Decade
  Sex: Female
  Weight: 50 kg

DRUGS (2)
  1. INFLIXIMAB [Suspect]
     Active Substance: INFLIXIMAB
     Indication: Rheumatoid arthritis
     Route: 041
     Dates: end: 2021
  2. REMICADE [Suspect]
     Active Substance: INFLIXIMAB
     Indication: Immunoglobulin G4 related disease
     Route: 041
     Dates: end: 2021

REACTIONS (1)
  - Chemotherapy [Unknown]
